FAERS Safety Report 10994722 (Version 4)
Quarter: 2015Q2

REPORT INFORMATION
  Report Type: Spontaneous
  Country: FR (occurrence: FR)
  Receive Date: 20150407
  Receipt Date: 20150520
  Transmission Date: 20150821
  Serious: Yes (Hospitalization, Other)
  Sender: FDA-Public Use
  Company Number: FR-ABBVIE-15P-056-1369088-00

PATIENT
  Age: 53 Year
  Sex: Female

DRUGS (2)
  1. VIEKIRAX [Suspect]
     Active Substance: OMBITASVIR\PARITAPREVIR\RITONAVIR
     Indication: HEPATITIS C
     Route: 048
     Dates: start: 20150327
  2. EXVIERA [Suspect]
     Active Substance: DASABUVIR
     Indication: HEPATITIS C
     Route: 048
     Dates: start: 20150327

REACTIONS (12)
  - Chest pain [Recovering/Resolving]
  - Sleep disorder [Recovered/Resolved]
  - Influenza like illness [Recovered/Resolved]
  - Hypertension [Recovering/Resolving]
  - Nausea [Unknown]
  - Palpitations [Recovering/Resolving]
  - Asthenia [Recovered/Resolved]
  - Muscle contracture [Unknown]
  - Headache [Unknown]
  - Dyspnoea [Recovering/Resolving]
  - Fatigue [Recovering/Resolving]
  - Muscle twitching [Recovered/Resolved]

NARRATIVE: CASE EVENT DATE: 201503
